APPROVED DRUG PRODUCT: ZELNORM
Active Ingredient: TEGASEROD MALEATE
Strength: EQ 2MG BASE
Dosage Form/Route: TABLET;ORAL
Application: N021200 | Product #001
Applicant: ALFASIGMA USA INC
Approved: Jul 24, 2002 | RLD: Yes | RS: No | Type: DISCN